FAERS Safety Report 7824031-4 (Version None)
Quarter: 2011Q4

REPORT INFORMATION
  Report Type: 
  Country: None (occurrence: None)
  Receive Date: 20111019
  Receipt Date: 20111011
  Transmission Date: 20120403
  Serious: Yes (Other)
  Sender: FDA-Public Use
  Company Number: PHFR2011GB03912

PATIENT
  Sex: Male

DRUGS (5)
  1. HYOSCINE [Concomitant]
     Dosage: 300 UG, TID
  2. FLUOXETINE [Concomitant]
     Dosage: 30 MG, QD
  3. CHLORAMBUCIL [Concomitant]
     Route: 065
  4. CLOZARIL [Suspect]
     Indication: SCHIZOPHRENIA
     Route: 065
     Dates: start: 19950615
  5. LORAZEPAM [Concomitant]
     Dosage: 1 MG, QID

REACTIONS (1)
  - NON-HODGKIN'S LYMPHOMA [None]
